FAERS Safety Report 7629946-8 (Version None)
Quarter: 2011Q3

REPORT INFORMATION
  Report Type: 
  Country: None (occurrence: None)
  Receive Date: 20110722
  Receipt Date: 20110513
  Transmission Date: 20111222
  Serious: No
  Sender: FDA-Public Use
  Company Number: US-BAYER-2011-041585

PATIENT
  Age: 60 Year
  Sex: Female
  Weight: 77.098 kg

DRUGS (6)
  1. DETROL LA [Concomitant]
     Dosage: UNK
  2. CORGARD [Concomitant]
     Dosage: UNK
  3. BETASERON [Suspect]
     Indication: MULTIPLE SCLEROSIS
     Dosage: UNK
     Route: 030
     Dates: start: 19940101, end: 20110101
  4. ZOLOFT [Concomitant]
     Dosage: UNK
  5. AMPYRA [Concomitant]
     Indication: GAIT DISTURBANCE
     Dosage: 10 MG, BID
     Dates: start: 20100501
  6. DIAZEPAM [Concomitant]
     Dosage: UNK

REACTIONS (2)
  - HYPERSENSITIVITY [None]
  - LOWER RESPIRATORY TRACT INFECTION [None]
